FAERS Safety Report 21363310 (Version 1)
Quarter: 2022Q3

REPORT INFORMATION
  Report Type: Spontaneous
  Country: CN (occurrence: CN)
  Receive Date: 20220922
  Receipt Date: 20220922
  Transmission Date: 20221027
  Serious: Yes (Other)
  Sender: FDA-Public Use
  Company Number: None

PATIENT
  Age: 68 Year
  Sex: Male
  Weight: 70 kg

DRUGS (3)
  1. CYCLOPHOSPHAMIDE [Suspect]
     Active Substance: CYCLOPHOSPHAMIDE
     Indication: Chronic kidney disease
     Dosage: AT 09:30, 0.2 G, ONCE IN 5 DAYS, D1, D5, D10 DILUTED WITH 0.9% SODIUM CHLORIDE INJECTION 250ML
     Route: 041
     Dates: start: 20220802, end: 20220811
  2. CYCLOPHOSPHAMIDE [Suspect]
     Active Substance: CYCLOPHOSPHAMIDE
     Indication: Lupus nephritis
  3. SODIUM CHLORIDE [Suspect]
     Active Substance: SODIUM CHLORIDE
     Indication: Medication dilution
     Dosage: AT 09:30, 250 ML, ONCE IN 5 DAYS, D1, D5, D10 DILUTED WITH CYCLOPHOSPHAMIDE 0.2 G
     Route: 041
     Dates: start: 20220802, end: 20220811

REACTIONS (2)
  - Myelosuppression [Recovering/Resolving]
  - Pancytopenia [Recovering/Resolving]

NARRATIVE: CASE EVENT DATE: 20220904
